FAERS Safety Report 17348320 (Version 1)
Quarter: 2020Q1

REPORT INFORMATION
  Report Type: Report from Study
  Country: US (occurrence: US)
  Receive Date: 20200129
  Receipt Date: 20200129
  Transmission Date: 20200409
  Serious: No
  Sender: FDA-Public Use
  Company Number: US-EXELIXIS-CABO-19023828

PATIENT
  Sex: Female

DRUGS (1)
  1. CABOMETYX [Suspect]
     Active Substance: CABOZANTINIB S-MALATE
     Indication: THYROID CANCER
     Dosage: 20 MG, QD (WITHOUT FOOD)
     Dates: start: 20190816, end: 20191007

REACTIONS (9)
  - Blister [Unknown]
  - Asthenia [Not Recovered/Not Resolved]
  - Diarrhoea [Recovered/Resolved]
  - Dysphonia [Not Recovered/Not Resolved]
  - Dry mouth [Unknown]
  - Decreased appetite [Not Recovered/Not Resolved]
  - Erythema [Unknown]
  - Fatigue [Recovered/Resolved]
  - Off label use [Unknown]
